FAERS Safety Report 6931033-9 (Version None)
Quarter: 2010Q3

REPORT INFORMATION
  Report Type: 
  Country: None (occurrence: None)
  Receive Date: 20100818
  Receipt Date: 20100809
  Transmission Date: 20110219
  Serious: Yes (Death, Other)
  Sender: FDA-Public Use
  Company Number: US-WATSON-2010-09555

PATIENT
  Sex: Male
  Weight: 86.621 kg

DRUGS (4)
  1. FENTANYL-50 [Suspect]
     Indication: PAIN
     Dosage: PRESCRIBED TO BE CHANGED EVERY 72 HOURS (EVERY THREE HOURS PLACE ON LEFT SHOULDER)
     Route: 062
     Dates: start: 20080714, end: 20100716
  2. HYDROCODONE BITARTRATE AND ACETAMINOPHEN [Suspect]
     Indication: PRODUCT USED FOR UNKNOWN INDICATION
     Dosage: UNK
     Route: 065
  3. CYCLOBENZAPRINE HYDROCHLORIDE [Suspect]
     Indication: PRODUCT USED FOR UNKNOWN INDICATION
     Dosage: 10 MG, TID
     Route: 048
     Dates: start: 20080714
  4. KETOROLAC [Concomitant]
     Indication: PRODUCT USED FOR UNKNOWN INDICATION
     Dosage: 30 MG, Q6H
     Route: 042
     Dates: start: 20080714

REACTIONS (13)
  - ATELECTASIS [None]
  - BRONCHOPNEUMONIA [None]
  - CORONARY ARTERY DISEASE [None]
  - CYANOSIS [None]
  - DILATATION VENTRICULAR [None]
  - DRUG ADMINISTRATION ERROR [None]
  - DRUG PRESCRIBING ERROR [None]
  - FEELING COLD [None]
  - HEPATIC STEATOSIS [None]
  - OVERDOSE [None]
  - PULMONARY ARTERY THROMBOSIS [None]
  - PULMONARY OEDEMA [None]
  - UNRESPONSIVE TO STIMULI [None]
